FAERS Safety Report 9433641 (Version 2)
Quarter: 2013Q3

REPORT INFORMATION
  Report Type: Spontaneous
  Country: FR (occurrence: FR)
  Receive Date: 20130731
  Receipt Date: 20130903
  Transmission Date: 20140515
  Serious: Yes (Hospitalization)
  Sender: FDA-Public Use
  Company Number: FR-B.I. PHARMACEUTICALS,INC./RIDGEFIELD-2013-FF-01953FF

PATIENT
  Age: 91 Year
  Sex: Female
  Weight: 68 kg

DRUGS (12)
  1. PRADAXA [Suspect]
     Indication: ATRIAL FIBRILLATION
     Dosage: 220 MG
     Route: 048
     Dates: end: 20130724
  2. ATENOLOL [Concomitant]
     Dosage: 25 MG
  3. DIFFU K [Concomitant]
  4. LOXEN 50 MG [Concomitant]
  5. PRAVASTATINE 20 [Concomitant]
  6. KARDEGIC 160 [Concomitant]
     Dosage: 160 MG
  7. INEXIUM [Concomitant]
     Route: 048
  8. DIAMICRON [Concomitant]
     Route: 048
  9. CORDARONE [Concomitant]
     Dosage: 200 MG
     Route: 048
  10. LASILIX [Concomitant]
  11. NEBIVOLOL [Concomitant]
  12. TAHOR [Concomitant]

REACTIONS (2)
  - Melaena [Recovered/Resolved]
  - International normalised ratio increased [Recovered/Resolved]
